FAERS Safety Report 6384509-X (Version None)
Quarter: 2009Q4

REPORT INFORMATION
  Report Type: 
  Country: None (occurrence: None)
  Receive Date: 20091001
  Receipt Date: 20090928
  Transmission Date: 20100525
  Serious: No
  Sender: FDA-Public Use
  Company Number: US-ROXANE LABORATORIES, INC.-2009-RO-00921RO

PATIENT
  Sex: Female
  Weight: 48 kg

DRUGS (7)
  1. ZALEPLON [Suspect]
     Indication: INSOMNIA
     Dates: start: 20090827
  2. ADVAIR DISKUS 100/50 [Concomitant]
     Indication: EMPHYSEMA
  3. SPIRIVA [Concomitant]
     Indication: EMPHYSEMA
  4. EYE PILLS [Concomitant]
  5. HIGH BLOOD PRESSURE PILL [Concomitant]
     Indication: HYPERTENSION
  6. TOPROL-XL [Concomitant]
     Indication: HYPERTENSION
     Dosage: 25 MG
  7. OCUPRESS [Concomitant]
     Indication: INTRAOCULAR PRESSURE TEST ABNORMAL
     Route: 031

REACTIONS (1)
  - DRUG INEFFECTIVE [None]
